FAERS Safety Report 7738105-X (Version None)
Quarter: 2011Q3

REPORT INFORMATION
  Report Type: 
  Country: None (occurrence: None)
  Receive Date: 20110906
  Receipt Date: 20110825
  Transmission Date: 20111222
  Serious: Yes (Hospitalization, Other)
  Sender: FDA-Public Use
  Company Number: JP-ACCORD-010267

PATIENT
  Age: 69 Year
  Sex: Male

DRUGS (3)
  1. PROSTAGLANDINS(PROSTAGLANDINS) [Concomitant]
  2. GEMCITABINE [Suspect]
     Indication: PANCREATIC CARCINOMA
     Dosage: 400.00-MG/M2, 80.00-MG-1.0DAYS
     Dates: start: 20081201, end: 20090801
  3. GEMCITABINE [Suspect]
     Indication: PANCREATIC CARCINOMA
     Dosage: 400.00-MG/M2, 80.00-MG-1.0DAYS
     Dates: start: 20081201, end: 20090801

REACTIONS (7)
  - EXTREMITY NECROSIS [None]
  - CONDITION AGGRAVATED [None]
  - RAYNAUD'S PHENOMENON [None]
  - PROTHROMBIN TIME PROLONGED [None]
  - ISCHAEMIA [None]
  - GANGRENE [None]
  - MULTI-ORGAN FAILURE [None]
